FAERS Safety Report 6142445-8 (Version None)
Quarter: 2009Q2

REPORT INFORMATION
  Report Type: 
  Country: None (occurrence: None)
  Receive Date: 20090403
  Receipt Date: 20090325
  Transmission Date: 20091009
  Serious: Yes (Hospitalization, Other)
  Sender: FDA-Public Use
  Company Number: JP-PFIZER INC-2009159723

PATIENT

DRUGS (5)
  1. GENOTROPIN [Suspect]
     Indication: GROWTH HORMONE DEFICIENCY
     Dosage: 1.0 MG, 1X/DAY
     Route: 058
     Dates: start: 20070926, end: 20090101
  2. GENOTROPIN [Suspect]
     Dosage: 1.0 MG, 1X/DAY
     Route: 058
  3. CORTRIL [Concomitant]
     Indication: HYPOPITUITARISM
     Dosage: UNK
  4. THYRADIN [Concomitant]
     Indication: HYPOPITUITARISM
     Dosage: UNK
  5. MUCOSTA [Concomitant]
     Dosage: UNK
     Route: 048
     Dates: start: 20041101

REACTIONS (1)
  - HAEMATOMA [None]
